FAERS Safety Report 10208518 (Version 2)
Quarter: 2014Q2

REPORT INFORMATION
  Report Type: Spontaneous
  Country: NL (occurrence: NL)
  Receive Date: 20140530
  Receipt Date: 20140625
  Transmission Date: 20141212
  Serious: Yes (Hospitalization, Other)
  Sender: FDA-Public Use
  Company Number: NL-GLAXOSMITHKLINE-B0998146A

PATIENT
  Age: 34 Year
  Sex: Female
  Weight: 60 kg

DRUGS (1)
  1. IMIGRAN [Suspect]
     Indication: MIGRAINE
     Dosage: 50MG SIX TIMES PER DAY
     Route: 048
     Dates: start: 2010, end: 2014

REACTIONS (2)
  - Cerebrovascular accident [Recovered/Resolved with Sequelae]
  - Thrombosis [Unknown]
